FAERS Safety Report 7056911-4 (Version None)
Quarter: 2010Q4

REPORT INFORMATION
  Report Type: 
  Country: None (occurrence: None)
  Receive Date: 20101021
  Receipt Date: 20101021
  Transmission Date: 20110411
  Serious: No
  Sender: FDA-Public Use
  Company Number: None

PATIENT
  Sex: Male
  Weight: 45 kg

DRUGS (1)
  1. DAYTRANA [Suspect]
     Indication: ATTENTION DEFICIT/HYPERACTIVITY DISORDER
     Dosage: APPLY PATCH DAILY AND REMOVE IN 8 HR DAILY
     Dates: start: 20061101

REACTIONS (2)
  - APPLICATION SITE REACTION [None]
  - VITILIGO [None]
